FAERS Safety Report 17987143 (Version 2)
Quarter: 2020Q3

REPORT INFORMATION
  Report Type: Spontaneous
  Country: US (occurrence: US)
  Receive Date: 20200707
  Receipt Date: 20200723
  Transmission Date: 20201103
  Serious: Yes (Life-Threatening)
  Sender: FDA-Public Use
  Company Number: US-HORIZON-KRY-0910-2020

PATIENT
  Age: 50 Year
  Sex: Male
  Weight: 122.5 kg

DRUGS (3)
  1. COLCHICINE. [Concomitant]
     Active Substance: COLCHICINE
     Indication: GOUT
  2. PREDNISONE. [Concomitant]
     Active Substance: PREDNISONE
     Indication: GOUT
  3. KRYSTEXXA [Suspect]
     Active Substance: PEGLOTICASE
     Indication: GOUT
     Dosage: 8MG IV EVERY 2 WEEKS
     Route: 042
     Dates: start: 20200617, end: 20200701

REACTIONS (1)
  - Anaphylactic reaction [Recovered/Resolved]

NARRATIVE: CASE EVENT DATE: 20200701
